FAERS Safety Report 16594633 (Version 1)
Quarter: 2019Q3

REPORT INFORMATION
  Report Type: Spontaneous
  Country: GB (occurrence: GB)
  Receive Date: 20190718
  Receipt Date: 20190718
  Transmission Date: 20191004
  Serious: Yes (Other)
  Sender: FDA-Public Use
  Company Number: GB-ALLERGAN-1929139US

PATIENT

DRUGS (2)
  1. CITALOPRAM HYDROBROMIDE - BP [Suspect]
     Active Substance: CITALOPRAM HYDROBROMIDE
     Indication: MAJOR DEPRESSION
     Dosage: UNK, IN THE MORNING
     Route: 065
  2. TREPILINE [Suspect]
     Active Substance: AMITRIPTYLINE
     Indication: MAJOR DEPRESSION
     Dosage: UNK, AT NIGHT
     Route: 065

REACTIONS (16)
  - Cardiac disorder [Unknown]
  - Hypoxia [Unknown]
  - Abdominal distension [Unknown]
  - Vision blurred [Unknown]
  - Suicidal ideation [Unknown]
  - Head discomfort [Unknown]
  - Dyspnoea [Unknown]
  - Fatigue [Unknown]
  - Diaphragmatic hernia [Unknown]
  - Chest pain [Unknown]
  - Syncope [Unknown]
  - Mental fatigue [Unknown]
  - Headache [Unknown]
  - Decreased interest [Unknown]
  - Functional gastrointestinal disorder [Unknown]
  - Electrocardiogram QT prolonged [Unknown]
